FAERS Safety Report 10339564 (Version 1)
Quarter: 2014Q3

REPORT INFORMATION
  Report Type: Spontaneous
  Country: AR (occurrence: AR)
  Receive Date: 20140724
  Receipt Date: 20140724
  Transmission Date: 20150326
  Serious: Yes (Other)
  Sender: FDA-Public Use
  Company Number: PHHY2014AR090158

PATIENT
  Age: 67 Year
  Sex: Female

DRUGS (2)
  1. PINDOLOL. [Suspect]
     Active Substance: PINDOLOL
  2. DRONEDARONE [Interacting]
     Active Substance: DRONEDARONE

REACTIONS (9)
  - Atrial fibrillation [Unknown]
  - Malaise [Unknown]
  - Hyperhidrosis [Unknown]
  - Atrioventricular block first degree [Unknown]
  - Drug interaction [Unknown]
  - Palpitations [Unknown]
  - Dyspnoea [Unknown]
  - Fatigue [Unknown]
  - Tachycardia [Unknown]
